FAERS Safety Report 10418729 (Version 1)
Quarter: 2014Q2

REPORT INFORMATION
  Report Type: Report from Study
  Country: US (occurrence: None)
  Receive Date: 20140627
  Receipt Date: 20140627
  Transmission Date: 20141212
  Serious: No
  Sender: FDA-Public Use
  Company Number: CABO-14004229

PATIENT
  Age: 66 Year
  Sex: Male

DRUGS (2)
  1. COMETRIQ (CABOZANTINIB) CAPSULE [Suspect]
     Indication: PROSTATE CANCER
     Route: 048
     Dates: start: 20140419, end: 20140421
  2. XGEVA (DENOSUMAB) [Concomitant]

REACTIONS (11)
  - Chills [None]
  - Tremor [None]
  - Anuria [None]
  - Abdominal discomfort [None]
  - Nausea [None]
  - Vomiting [None]
  - Fatigue [None]
  - Dehydration [None]
  - Asthenia [None]
  - Diarrhoea [None]
  - Off label use [None]
